FAERS Safety Report 17089573 (Version 1)
Quarter: 2019Q4

REPORT INFORMATION
  Report Type: Spontaneous
  Country: ES (occurrence: ES)
  Receive Date: 20191128
  Receipt Date: 20191128
  Transmission Date: 20200122
  Serious: Yes (Hospitalization)
  Sender: FDA-Public Use
  Company Number: ES-009507513-1911ESP007395

PATIENT
  Sex: Male
  Weight: 72.4 kg

DRUGS (16)
  1. ATEZOLIZUMAB. [Suspect]
     Active Substance: ATEZOLIZUMAB
     Indication: LUNG NEOPLASM MALIGNANT
     Dosage: UNK
     Route: 042
     Dates: start: 20191017
  2. NOLOTIL (DIPYRONE MAGNESIUM (+) PROPOXYPHENE HYDROCHLORIDE) [Concomitant]
     Dosage: 1-1-1-1
     Dates: start: 20191011
  3. AMERIDE [Concomitant]
     Indication: HYPERTENSION
     Dosage: 1 DOSAGE FORM, QD
     Route: 048
     Dates: start: 20160118, end: 20191023
  4. ACETAMINOPHEN. [Concomitant]
     Active Substance: ACETAMINOPHEN
     Dosage: 1-1-1-1
     Dates: start: 20190613
  5. ATENOLOL. [Concomitant]
     Active Substance: ATENOLOL
     Dosage: 1-0-0
     Route: 048
     Dates: start: 20080802
  6. GEMFIBROZIL. [Concomitant]
     Active Substance: GEMFIBROZIL
     Dosage: 0-0-1
     Route: 048
     Dates: start: 20070402
  7. OMEPRAZOLE. [Concomitant]
     Active Substance: OMEPRAZOLE
     Dosage: 1-0-0
     Route: 048
     Dates: start: 20121018
  8. IBUPROFEN. [Concomitant]
     Active Substance: IBUPROFEN
     Dosage: 1-0-0
     Dates: start: 20190613
  9. TERBASMIN TURBUHALER [Concomitant]
     Active Substance: TERBUTALINE SULFATE
     Dosage: 1-0-0
     Dates: start: 20180320
  10. LOSARTAN POTASSIUM. [Suspect]
     Active Substance: LOSARTAN POTASSIUM
     Indication: HYPERTENSION
     Dosage: 25 MILLIGRAM, QD
     Dates: start: 20150119, end: 20191031
  11. ACFOL [Concomitant]
     Active Substance: FOLIC ACID
     Dosage: 1-0-0
     Dates: start: 20190219
  12. MOVICOL [Concomitant]
     Active Substance: POLYETHYLENE GLYCOL 3350\POTASSIUM CHLORIDE\SODIUM BICARBONATE\SODIUM CHLORIDE
     Dosage: 1-1-1
     Dates: start: 20191031
  13. LORAZEPAM. [Concomitant]
     Active Substance: LORAZEPAM
     Dosage: 1-0-0
     Dates: start: 20190620
  14. ZALDIAR [Concomitant]
     Active Substance: ACETAMINOPHEN\TRAMADOL HYDROCHLORIDE
     Dosage: 1-1-1
     Dates: start: 20191011
  15. NASONEX [Concomitant]
     Active Substance: MOMETASONE FUROATE
     Dosage: 4-0-0
     Dates: start: 20170719
  16. TOVANOR BREEZHALER [Concomitant]
     Active Substance: GLYCOPYRROLATE
     Dosage: 1-0-0
     Dates: start: 20181114

REACTIONS (2)
  - Hyponatraemia [Recovering/Resolving]
  - Condition aggravated [Recovering/Resolving]

NARRATIVE: CASE EVENT DATE: 20191031
